FAERS Safety Report 26095712 (Version 1)
Quarter: 2025Q4

REPORT INFORMATION
  Report Type: Spontaneous
  Country: US (occurrence: US)
  Receive Date: 20251127
  Receipt Date: 20251127
  Transmission Date: 20260117
  Serious: Yes (Other)
  Sender: ROCHE
  Company Number: US-ROCHE-10000445056

PATIENT
  Age: 36 Year
  Sex: Male

DRUGS (5)
  1. XOLAIR [Suspect]
     Active Substance: OMALIZUMAB
     Indication: Dermatitis atopic
     Route: 058
     Dates: start: 202410
  2. ENTYVIO PEN [Concomitant]
     Active Substance: VEDOLIZUMAB
  3. BUDESONIDE [Concomitant]
     Active Substance: BUDESONIDE
     Dosage: DOSE AND FREQUENCY: UNKNOWN
  4. XYZAL [Concomitant]
     Active Substance: LEVOCETIRIZINE DIHYDROCHLORIDE
  5. HYDROXYZINE [Concomitant]
     Active Substance: HYDROXYZINE HYDROCHLORIDE

REACTIONS (3)
  - Crohn^s disease [Unknown]
  - Viral infection [Unknown]
  - Off label use [Unknown]

NARRATIVE: CASE EVENT DATE: 20250901
